FAERS Safety Report 5959403-6 (Version None)
Quarter: 2008Q4

REPORT INFORMATION
  Report Type: 
  Country: None (occurrence: None)
  Receive Date: 20081120
  Receipt Date: 20080826
  Transmission Date: 20090506
  Serious: No
  Sender: FDA-Public Use
  Company Number: A0743719A

PATIENT
  Age: 63 Year
  Sex: Female

DRUGS (7)
  1. VERAMYST [Suspect]
     Dosage: 2SPR PER DAY
     Route: 045
     Dates: start: 20080101
  2. ALLEGRA [Concomitant]
  3. PROTONIX [Concomitant]
  4. PLAQUENIL [Concomitant]
  5. ULTRAM [Concomitant]
  6. MOBIC [Concomitant]
  7. LEVSIN [Concomitant]

REACTIONS (3)
  - DRUG INEFFECTIVE [None]
  - EYE PRURITUS [None]
  - SINUSITIS [None]
